FAERS Safety Report 6030898-5 (Version None)
Quarter: 2009Q1

REPORT INFORMATION
  Report Type: 
  Country: None (occurrence: None)
  Receive Date: 20090106
  Receipt Date: 20081226
  Transmission Date: 20090719
  Serious: Yes (Hospitalization)
  Sender: FDA-Public Use
  Company Number: MEDI-0007680

PATIENT
  Age: 4 Month
  Sex: Female

DRUGS (1)
  1. SYNAGIS [Suspect]
     Indication: RESPIRATORY SYNCYTIAL VIRUS INFECTION
     Dates: start: 20081114, end: 20081114

REACTIONS (2)
  - CELLULITIS [None]
  - VULVAL OEDEMA [None]
